FAERS Safety Report 5474365-6 (Version None)
Quarter: 2007Q4

REPORT INFORMATION
  Report Type: 
  Country: None (occurrence: None)
  Receive Date: 20071002
  Receipt Date: 20070920
  Transmission Date: 20080405
  Serious: Yes (Other)
  Sender: FDA-Public Use
  Company Number: PHNU2007DE03266

PATIENT
  Age: 61 Year

DRUGS (2)
  1. IMMUNOSPORIN [Suspect]
  2. LISINOPRIL [Concomitant]

REACTIONS (1)
  - ANGIOEDEMA [None]
